FAERS Safety Report 4807170-1 (Version None)
Quarter: 2005Q4

REPORT INFORMATION
  Report Type: 
  Country: None (occurrence: None)
  Receive Date: 20051024
  Receipt Date: 20051013
  Transmission Date: 20060501
  Serious: Yes (Hospitalization)
  Sender: FDA-Public Use
  Company Number: 2005CG01710

PATIENT
  Age: 80 Year
  Sex: Male

DRUGS (3)
  1. MOPRAL [Suspect]
     Indication: GASTRITIS
     Route: 048
     Dates: end: 20050911
  2. MOPRAL [Suspect]
     Route: 048
     Dates: start: 20050912, end: 20050915
  3. MOPRAL [Suspect]
     Route: 048
     Dates: start: 20050927

REACTIONS (6)
  - CARDIOGENIC SHOCK [None]
  - CEREBRAL ISCHAEMIA [None]
  - CONFUSIONAL STATE [None]
  - DISORIENTATION [None]
  - LEFT VENTRICULAR FAILURE [None]
  - RENAL IMPAIRMENT [None]
